FAERS Safety Report 7308849-2 (Version None)
Quarter: 2011Q1

REPORT INFORMATION
  Report Type: 
  Country: None (occurrence: None)
  Receive Date: 20110211
  Receipt Date: 20110207
  Transmission Date: 20110831
  Serious: Yes (Other)
  Sender: FDA-Public Use
  Company Number: A0912231A

PATIENT
  Age: 76 Year
  Sex: Male

DRUGS (2)
  1. ASPIRIN + CAFFEINE +SALICYLAMIDE (FORMULATION UNKNOWN (ASPIRIN+CAFFEIN [Suspect]
     Dosage: /ORAL
     Route: 048
  2. ASPIRIN + CAFFEINE +SALICYLAMIDE (FORMULATION UNKNOWN (ASPIRIN+CAFFEIN [Suspect]
     Dosage: /ORAL
     Route: 048

REACTIONS (3)
  - HAEMORRHOIDS [None]
  - CONDITION AGGRAVATED [None]
  - DIARRHOEA HAEMORRHAGIC [None]
